FAERS Safety Report 23666666 (Version 2)
Quarter: 2024Q2

REPORT INFORMATION
  Report Type: Report from Study
  Country: US (occurrence: US)
  Receive Date: 20240325
  Receipt Date: 20240502
  Transmission Date: 20240716
  Serious: Yes (Death, Other)
  Sender: FDA-Public Use
  Company Number: US-ABBVIE-5691584

PATIENT
  Sex: Male
  Weight: 64.8 kg

DRUGS (3)
  1. VENCLEXTA [Suspect]
     Active Substance: VENETOCLAX
     Indication: Myelodysplastic syndrome with multilineage dysplasia
     Dosage: TIME INTERVAL: TOTAL: 1 TABLET BY MOUTH ON DAY 1;  FORM STRENGTH: 100 MG
     Route: 048
  2. VENCLEXTA [Suspect]
     Active Substance: VENETOCLAX
     Indication: Myelodysplastic syndrome with multilineage dysplasia
     Dosage: TIME INTERVAL: TOTAL: 2 TABLET(S) BY MOUTH ON DAY 2
     Route: 048
  3. VENCLEXTA [Suspect]
     Active Substance: VENETOCLAX
     Indication: Myelodysplastic syndrome with multilineage dysplasia
     Dosage: 4 TABLET(S) BY MOUTH DAILY
     Route: 048

REACTIONS (3)
  - Death [Fatal]
  - Off label use [Unknown]
  - Leukaemia [Unknown]
